FAERS Safety Report 6096313-0 (Version None)
Quarter: 2009Q1

REPORT INFORMATION
  Report Type: 
  Country: None (occurrence: None)
  Receive Date: 20090227
  Receipt Date: 20081209
  Transmission Date: 20090719
  Serious: No
  Sender: FDA-Public Use
  Company Number: A0755809A

PATIENT
  Age: 24 Year
  Sex: Female
  Weight: 85 kg

DRUGS (8)
  1. LAMICTAL [Suspect]
     Indication: BIPOLAR DISORDER
     Dosage: 25MG PER DAY
     Route: 048
     Dates: start: 20081027
  2. EFFEXOR [Concomitant]
     Dosage: 225MG PER DAY
     Route: 048
  3. FLEXERIL [Concomitant]
     Dosage: 10MG AS REQUIRED
     Route: 048
  4. ATIVAN [Concomitant]
     Dosage: 1MG AS REQUIRED
     Route: 048
  5. NEXIUM [Concomitant]
     Dosage: 40MG PER DAY
     Route: 048
  6. SEROQUEL [Concomitant]
     Dosage: 100MG AT NIGHT
     Route: 048
  7. PHENERGAN [Concomitant]
     Dosage: 25MG AS REQUIRED
     Route: 048
  8. TYLENOL W/ CODEINE NO. 3 [Concomitant]
     Route: 048

REACTIONS (10)
  - COUGH [None]
  - ILL-DEFINED DISORDER [None]
  - ORAL PAIN [None]
  - OROPHARYNGEAL PAIN [None]
  - PHARYNGITIS STREPTOCOCCAL [None]
  - PYREXIA [None]
  - RASH [None]
  - RASH ERYTHEMATOUS [None]
  - RASH GENERALISED [None]
  - RASH PRURITIC [None]
